FAERS Safety Report 25443282 (Version 1)
Quarter: 2025Q2

REPORT INFORMATION
  Report Type: Report from Study
  Country: IN (occurrence: IN)
  Receive Date: 20250617
  Receipt Date: 20250617
  Transmission Date: 20250717
  Serious: Yes (Other)
  Sender: ROCHE
  Company Number: IN-ROCHE-10000309965

PATIENT
  Age: 35 Year
  Sex: Male

DRUGS (8)
  1. CELLCEPT [Suspect]
     Active Substance: MYCOPHENOLATE MOFETIL
     Indication: Renal transplant
     Route: 048
     Dates: start: 20210415
  2. Cap Vingraf 1.0 mg [Concomitant]
  3. Tab Evergraf 0.25 mg [Concomitant]
  4. Tab Omnacortil 5 mg [Concomitant]
  5. Tab Moxovas 0.2 mg [Concomitant]
  6. Cap Urimax 0.4 mg [Concomitant]
  7. Tab Febuget 20 mg [Concomitant]
  8. Tab Augmentin Duo 625mg [Concomitant]

REACTIONS (3)
  - Urethral stenosis [Unknown]
  - Pyrexia [Unknown]
  - Blood creatinine increased [Unknown]

NARRATIVE: CASE EVENT DATE: 20250413
